FAERS Safety Report 8351980-3 (Version None)
Quarter: 2012Q2

REPORT INFORMATION
  Report Type: 
  Country: None (occurrence: None)
  Receive Date: 20120510
  Receipt Date: 20120510
  Transmission Date: 20120825
  Serious: No
  Sender: FDA-Public Use
  Company Number: None

PATIENT
  Age: 29 Year
  Sex: Female
  Weight: 53.5244 kg

DRUGS (1)
  1. CIPROFLOXACIN [Suspect]
     Indication: CYSTITIS
     Dosage: -1- 500MG TWICE /DAY PO
     Route: 048
     Dates: start: 20120501, end: 20120506

REACTIONS (8)
  - BACK PAIN [None]
  - EYE PAIN [None]
  - ABNORMAL DREAMS [None]
  - ANXIETY [None]
  - INSOMNIA [None]
  - HEADACHE [None]
  - NIGHT SWEATS [None]
  - ARTHRALGIA [None]
